FAERS Safety Report 12633123 (Version 2)
Quarter: 2016Q3

REPORT INFORMATION
  Report Type: Spontaneous
  Country: US (occurrence: US)
  Receive Date: 20160808
  Receipt Date: 20160808
  Transmission Date: 20161109
  Serious: No
  Sender: FDA-Public Use
  Company Number: US-BEH-2016058489

PATIENT
  Age: 53 Year
  Sex: Male
  Weight: 135 kg

DRUGS (16)
  1. PRILOSEC [Concomitant]
     Active Substance: OMEPRAZOLE MAGNESIUM
  2. VITAMIN D [Concomitant]
     Active Substance: CHOLECALCIFEROL
  3. MAVIK [Concomitant]
     Active Substance: TRANDOLAPRIL
  4. CITALOPRAM [Concomitant]
     Active Substance: CITALOPRAM HYDROBROMIDE
  5. CARVEDILOL. [Concomitant]
     Active Substance: CARVEDILOL
  6. DIPHENHYDRAMINE. [Concomitant]
     Active Substance: DIPHENHYDRAMINE
  7. RELION [Concomitant]
  8. ACETAMINOPHEN. [Concomitant]
     Active Substance: ACETAMINOPHEN
  9. ASPIRIN. [Concomitant]
     Active Substance: ASPIRIN
  10. HIZENTRA [Suspect]
     Active Substance: HUMAN IMMUNOGLOBULIN G
     Indication: IMMUNODEFICIENCY COMMON VARIABLE
     Route: 058
     Dates: start: 20130122
  11. HYDROCHLORTHIAZIDE [Concomitant]
     Active Substance: HYDROCHLOROTHIAZIDE
  12. MULTIVITAMIN [Concomitant]
     Active Substance: VITAMINS
  13. LIDOCAINE/PRILOCAINE [Concomitant]
     Active Substance: LIDOCAINE\PRILOCAINE
  14. EPIPEN [Concomitant]
     Active Substance: EPINEPHRINE
  15. GABAPENTIN. [Concomitant]
     Active Substance: GABAPENTIN
  16. TRAZODONE [Concomitant]
     Active Substance: TRAZODONE HYDROCHLORIDE

REACTIONS (2)
  - Pharyngitis streptococcal [Unknown]
  - Bronchitis [Unknown]

NARRATIVE: CASE EVENT DATE: 201512
